FAERS Safety Report 8512727-0 (Version None)
Quarter: 2012Q3

REPORT INFORMATION
  Report Type: 
  Country: None (occurrence: None)
  Receive Date: 20120716
  Receipt Date: 20120706
  Transmission Date: 20120928
  Serious: Yes (Hospitalization)
  Sender: FDA-Public Use
  Company Number: US-JNJFOC-20120704206

PATIENT
  Sex: Male

DRUGS (3)
  1. ANTIBIOTIC (UNSPECIFIED) [Concomitant]
  2. XARELTO [Suspect]
     Indication: THROMBOSIS PROPHYLAXIS
     Dosage: DRUG WITHHELD FOR 5 DAYS FOR PRE-EXISTING ROTATOR CUFF INJURY
     Route: 048
     Dates: start: 20120503
  3. XARELTO [Suspect]
     Route: 048
     Dates: start: 20120703

REACTIONS (3)
  - PETECHIAE [None]
  - RASH [None]
  - ROTATOR CUFF REPAIR [None]
